FAERS Safety Report 18676215 (Version 1)
Quarter: 2020Q4

REPORT INFORMATION
  Report Type: Spontaneous
  Country: US (occurrence: US)
  Receive Date: 20201228
  Receipt Date: 20201228
  Transmission Date: 20210114
  Serious: No
  Sender: FDA-Public Use
  Company Number: None

PATIENT
  Age: 63 Year
  Sex: Female

DRUGS (1)
  1. AJOVY [Suspect]
     Active Substance: FREMANEZUMAB-VFRM
     Indication: MIGRAINE
     Route: 058
     Dates: start: 20200831

REACTIONS (8)
  - Incorrect dose administered [None]
  - Injection site erythema [None]
  - Injection site pain [None]
  - Device malfunction [None]
  - Therapy interrupted [None]
  - Injection site extravasation [None]
  - Accidental exposure to product [None]
  - Injection site mass [None]

NARRATIVE: CASE EVENT DATE: 20201212
